FAERS Safety Report 15760696 (Version 2)
Quarter: 2018Q4

REPORT INFORMATION
  Report Type: Spontaneous
  Country: US (occurrence: US)
  Receive Date: 20181226
  Receipt Date: 20181227
  Transmission Date: 20190205
  Serious: No
  Sender: FDA-Public Use
  Company Number: US-PFIZER INC-2018526948

PATIENT
  Age: 44 Year
  Sex: Female

DRUGS (1)
  1. LYRICA [Suspect]
     Active Substance: PREGABALIN
     Dosage: 75 MG, 3X/DAY
     Route: 048

REACTIONS (13)
  - Musculoskeletal pain [Unknown]
  - Balance disorder [Unknown]
  - Blepharospasm [Unknown]
  - Muscle spasms [Unknown]
  - Chest pain [Unknown]
  - Burning sensation [Unknown]
  - Back pain [Unknown]
  - Vision blurred [Unknown]
  - Hypoaesthesia [Unknown]
  - Dyskinesia [Unknown]
  - Pain in extremity [Unknown]
  - Dizziness [Unknown]
  - Peripheral swelling [Unknown]
